FAERS Safety Report 7301043-0 (Version None)
Quarter: 2011Q1

REPORT INFORMATION
  Report Type: 
  Country: None (occurrence: None)
  Receive Date: 20110218
  Receipt Date: 20110208
  Transmission Date: 20110831
  Serious: No
  Sender: FDA-Public Use
  Company Number: GB-MYLANLABS-2010S1010594

PATIENT
  Age: 7 Month
  Sex: Female

DRUGS (8)
  1. DOMPERIDONE [Concomitant]
     Dates: start: 20100401
  2. POTASSIUM CITRATE [Concomitant]
     Dates: start: 20100401
  3. SODIUM BICARBONATE [Concomitant]
     Dates: start: 20100403
  4. CYSTAGON [Suspect]
     Route: 048
     Dates: start: 20100715
  5. MULTIVITAMIN [Concomitant]
     Dates: start: 20100302
  6. PHOSPHATE /01318702/ [Concomitant]
     Dates: start: 20100401
  7. CYSTAGON [Suspect]
     Indication: CYSTINOSIS
     Route: 048
     Dates: start: 20100430, end: 20100528
  8. ALFACALCIDOL [Concomitant]
     Dates: start: 20100401

REACTIONS (1)
  - VOMITING [None]
